FAERS Safety Report 9223747 (Version 1)
Quarter: 2013Q2

REPORT INFORMATION
  Report Type: Spontaneous
  Country: US (occurrence: US)
  Receive Date: 20130410
  Receipt Date: 20130410
  Transmission Date: 20140414
  Serious: No
  Sender: FDA-Public Use
  Company Number: US-ASTRAZENECA-2013SE20002

PATIENT
  Age: 72 Year
  Sex: Female
  Weight: 95.3 kg

DRUGS (1)
  1. NEXIUM [Suspect]
     Indication: GASTROOESOPHAGEAL REFLUX DISEASE
     Route: 048
     Dates: start: 2010, end: 20130322

REACTIONS (2)
  - Dyspepsia [Not Recovered/Not Resolved]
  - Intentional drug misuse [Not Recovered/Not Resolved]
